FAERS Safety Report 12701831 (Version 1)
Quarter: 2016Q3

REPORT INFORMATION
  Report Type: Spontaneous
  Country: US (occurrence: US)
  Receive Date: 20160831
  Receipt Date: 20160831
  Transmission Date: 20161109
  Serious: No
  Sender: FDA-Public Use
  Company Number: US-JAZZ-2016-US-007533

PATIENT
  Age: 57 Year
  Sex: Female

DRUGS (7)
  1. DICLOFENAC SODIUM DR [Concomitant]
     Active Substance: DICLOFENAC SODIUM
  2. MORPHINE SULFATE CR [Concomitant]
     Active Substance: MORPHINE SULFATE
  3. GABAPENTIN. [Concomitant]
     Active Substance: GABAPENTIN
  4. VICODIN HP [Concomitant]
     Active Substance: ACETAMINOPHEN\HYDROCODONE BITARTRATE
  5. METOPROLOL SUCCINATE ER [Concomitant]
     Active Substance: METOPROLOL SUCCINATE
  6. MODAFINIL. [Concomitant]
     Active Substance: MODAFINIL
  7. XYREM [Suspect]
     Active Substance: SODIUM OXYBATE
     Indication: NARCOLEPSY
     Dosage: 2.25 G, BID
     Route: 048
     Dates: start: 201604

REACTIONS (2)
  - Mood altered [Not Recovered/Not Resolved]
  - Irritability [Not Recovered/Not Resolved]

NARRATIVE: CASE EVENT DATE: 201604
